FAERS Safety Report 5086486-0 (Version None)
Quarter: 2006Q3

REPORT INFORMATION
  Report Type: 
  Country: None (occurrence: None)
  Receive Date: 20060823
  Receipt Date: 20060817
  Transmission Date: 20061208
  Serious: Yes (Death)
  Sender: FDA-Public Use
  Company Number: IE-AVENTIS-200618605GDDC

PATIENT
  Age: 68 Year
  Sex: Female

DRUGS (9)
  1. TAXOTERE [Suspect]
     Route: 041
     Dates: start: 20060510, end: 20060630
  2. LYRICA [Concomitant]
  3. MS CONTIN [Concomitant]
  4. SEVREDOL [Concomitant]
  5. IBUPROFEN [Concomitant]
  6. LOSEC [Concomitant]
  7. SOLPADOL [Concomitant]
  8. DEXAMETHASONE [Concomitant]
     Dosage: DOSE: 0.2%
  9. ONDANSETRON HCL [Concomitant]

REACTIONS (1)
  - PNEUMONITIS [None]
